FAERS Safety Report 9290073 (Version 1)
Quarter: 2013Q2

REPORT INFORMATION
  Report Type: Spontaneous
  Country: US (occurrence: None)
  Receive Date: 20130514
  Receipt Date: 20130514
  Transmission Date: 20140414
  Serious: Yes (Other)
  Sender: FDA-Public Use
  Company Number: None

PATIENT
  Age: 54 Year
  Sex: Female
  Weight: 63.5 kg

DRUGS (1)
  1. SEPTOCAINE [Suspect]
     Indication: HYPOAESTHESIA ORAL
     Dosage: INJECTION (2 CARP) MANDIBULAR BLOCK

REACTIONS (3)
  - Hypoaesthesia oral [None]
  - Delayed recovery from anaesthesia [None]
  - Anaesthetic complication [None]
